FAERS Safety Report 7268177-0 (Version None)
Quarter: 2011Q1

REPORT INFORMATION
  Report Type: 
  Country: None (occurrence: None)
  Receive Date: 20110201
  Receipt Date: 20110120
  Transmission Date: 20110831
  Serious: Yes (Hospitalization)
  Sender: FDA-Public Use
  Company Number: PHHY2011FR01449

PATIENT
  Sex: Male

DRUGS (3)
  1. TAMSULOSIN HCL [Concomitant]
  2. TRILEPTAL [Suspect]
     Dosage: 150 MG, BID
  3. TRILEPTAL [Suspect]
     Dosage: 300 MG, BID

REACTIONS (5)
  - PAIN [None]
  - RASH [None]
  - DYSPNOEA [None]
  - NAUSEA [None]
  - TACHYCARDIA [None]
